FAERS Safety Report 7491217-0 (Version None)
Quarter: 2011Q2

REPORT INFORMATION
  Report Type: 
  Country: None (occurrence: None)
  Receive Date: 20110518
  Receipt Date: 20110428
  Transmission Date: 20111010
  Serious: Yes (Other)
  Sender: FDA-Public Use
  Company Number: JPI-P-014380

PATIENT
  Age: 59 Year
  Sex: Female
  Weight: 93.441 kg

DRUGS (8)
  1. HYDROCODONE BITARTRATE AND ACETAMINOPHEN [Concomitant]
  2. DULOXETINE HYDROCHLORIDE [Concomitant]
  3. BUPROPION HYDROCHLORIDE [Concomitant]
  4. TRAZODONE HCL [Concomitant]
  5. XYREM [Suspect]
     Indication: CATAPLEXY
     Route: 048
     Dates: start: 20110221, end: 20110101
  6. XYREM [Suspect]
     Indication: CATAPLEXY
     Route: 048
     Dates: start: 20110101, end: 20110101
  7. XYREM [Suspect]
     Indication: CATAPLEXY
     Route: 048
     Dates: start: 20110101
  8. FENTANYL [Concomitant]

REACTIONS (13)
  - VOMITING [None]
  - HEADACHE [None]
  - URINARY TRACT INFECTION [None]
  - FALL [None]
  - DYSGEUSIA [None]
  - FATIGUE [None]
  - DIZZINESS [None]
  - ENURESIS [None]
  - INSOMNIA [None]
  - LIMB INJURY [None]
  - FUNGAL INFECTION [None]
  - EPILEPSY [None]
  - NAUSEA [None]
